FAERS Safety Report 4636461-2 (Version None)
Quarter: 2005Q2

REPORT INFORMATION
  Report Type: 
  Country: None (occurrence: None)
  Receive Date: 20050415
  Receipt Date: 20050406
  Transmission Date: 20051028
  Serious: Yes (Hospitalization, Disabling)
  Sender: FDA-Public Use
  Company Number: US-ROCHE-401244

PATIENT
  Sex: Male

DRUGS (1)
  1. ACCUTANE [Suspect]
     Indication: ACNE
     Route: 048

REACTIONS (5)
  - GLOMERULOSCLEROSIS [None]
  - MULTI-ORGAN DISORDER [None]
  - PROTEINURIA [None]
  - RENAL DISORDER [None]
  - RENAL FAILURE [None]
